FAERS Safety Report 6114820-9 (Version None)
Quarter: 2009Q1

REPORT INFORMATION
  Report Type: 
  Country: None (occurrence: None)
  Receive Date: 20090313
  Receipt Date: 20090302
  Transmission Date: 20090719
  Serious: Yes (Hospitalization)
  Sender: FDA-Public Use
  Company Number: IN-ROCHE-618117

PATIENT
  Sex: Male
  Weight: 54.5 kg

DRUGS (9)
  1. METHOXY POLYETHYLENE GLYCOL-EPOETIN BETA [Suspect]
     Dosage: LAST DOSE PRIOR TO SAE: 23 JANUARY 2009, FORM: PFS
     Route: 058
     Dates: start: 20090123
  2. ISONIAZID [Concomitant]
     Dates: start: 20090305
  3. ETHAMBUTOL HCL [Concomitant]
     Dates: start: 20090305
  4. LEVOFLOXACIN [Concomitant]
     Dates: start: 20090305
  5. PREDNISOLONE [Concomitant]
     Dates: start: 20090305
  6. ISOSORBIDE DINITRATE [Concomitant]
     Dates: start: 20090305
  7. AMLODIPINE [Concomitant]
     Dates: start: 20090305
  8. MEZLOCILLINE [Concomitant]
     Dates: start: 20090305
  9. INSULIN [Concomitant]
     Dosage: TDD: 16-16-16
     Dates: start: 20090305

REACTIONS (3)
  - COMA [None]
  - HYPOGLYCAEMIC SEIZURE [None]
  - PERICARDIAL EFFUSION [None]
